FAERS Safety Report 13353287 (Version 2)
Quarter: 2017Q2

REPORT INFORMATION
  Report Type: Spontaneous
  Country: US (occurrence: US)
  Receive Date: 20170321
  Receipt Date: 20170410
  Transmission Date: 20170830
  Serious: Yes (Hospitalization)
  Sender: FDA-Public Use
  Company Number: US-B.I. PHARMACEUTICALS,INC./RIDGEFIELD-2017-BI-014779

PATIENT
  Age: 51 Year
  Sex: Male

DRUGS (2)
  1. SPIRIVA [Suspect]
     Active Substance: TIOTROPIUM BROMIDE MONOHYDRATE
     Indication: CHRONIC OBSTRUCTIVE PULMONARY DISEASE
     Dosage: ACTION TAKEN: NOT REPORTED
     Route: 065
     Dates: start: 2007
  2. COMBIVENT [Suspect]
     Active Substance: ALBUTEROL SULFATE\IPRATROPIUM BROMIDE
     Indication: CHRONIC OBSTRUCTIVE PULMONARY DISEASE
     Dosage: FORM STRENGTH: 20 MCG / 100 MCG;, ACTION TAKEN: NOT REPORTED
     Route: 065
     Dates: start: 201503

REACTIONS (3)
  - Chronic obstructive pulmonary disease [Unknown]
  - Pneumonia [Unknown]
  - Disorientation [Unknown]

NARRATIVE: CASE EVENT DATE: 20170302
